FAERS Safety Report 10544811 (Version 1)
Quarter: 2014Q4

REPORT INFORMATION
  Report Type: Spontaneous
  Country: US (occurrence: US)
  Receive Date: 20141027
  Receipt Date: 20141027
  Transmission Date: 20150529
  Serious: No
  Sender: FDA-Public Use
  Company Number: US-TEVA-514078USA

PATIENT
  Age: 25 Year
  Sex: Male

DRUGS (1)
  1. CLARAVIS [Suspect]
     Active Substance: ISOTRETINOIN

REACTIONS (4)
  - Anger [Unknown]
  - Blood creatine phosphokinase increased [Unknown]
  - Mood altered [Unknown]
  - Depressed mood [Unknown]
